FAERS Safety Report 17647263 (Version 2)
Quarter: 2021Q4

REPORT INFORMATION
  Report Type: Spontaneous
  Country: US (occurrence: US)
  Receive Date: 20200408
  Receipt Date: 20211115
  Transmission Date: 20220303
  Serious: No
  Sender: FDA-Public Use
  Company Number: US-OPTINOSE US, INC-2020OPT000044

PATIENT
  Age: 41 Year
  Sex: Female

DRUGS (6)
  1. XHANCE [Suspect]
     Active Substance: FLUTICASONE PROPIONATE
     Indication: Multiple allergies
     Dosage: ADMINISTER TO AFFECTED AREA
     Route: 045
     Dates: start: 201912
  2. XHANCE [Suspect]
     Active Substance: FLUTICASONE PROPIONATE
     Route: 045
     Dates: end: 20210604
  3. ODACTRA [Suspect]
     Active Substance: DERMATOPHAGOIDES FARINAE\DERMATOPHAGOIDES PTERONYSSINUS
     Indication: Product used for unknown indication
     Route: 065
  4. LEVOTHYROXINE [Concomitant]
     Active Substance: LEVOTHYROXINE
     Indication: Product used for unknown indication
     Route: 065
  5. CLARITHROMYCIN [Concomitant]
     Active Substance: CLARITHROMYCIN
     Indication: Product used for unknown indication
     Route: 065
  6. OMEPRAZOLE [Concomitant]
     Active Substance: OMEPRAZOLE
     Indication: Product used for unknown indication
     Route: 065

REACTIONS (3)
  - Chest discomfort [Unknown]
  - Oedema peripheral [Recovered/Resolved]
  - Product use in unapproved indication [Recovered/Resolved]
